FAERS Safety Report 24996058 (Version 1)
Quarter: 2025Q1

REPORT INFORMATION
  Report Type: Spontaneous
  Country: US (occurrence: US)
  Receive Date: 20250221
  Receipt Date: 20250221
  Transmission Date: 20250409
  Serious: No
  Sender: CATALYST PHARMA
  Company Number: US-CATALYST PHARMACEUTICALS-US-CATA-24-01650

PATIENT
  Sex: Male
  Weight: 58.957 kg

DRUGS (6)
  1. AGAMREE [Suspect]
     Active Substance: VAMOROLONE
     Indication: Duchenne muscular dystrophy
     Dosage: 7.5 ML ONCE A DAY
     Route: 048
     Dates: start: 20240603
  2. ANTACID [Concomitant]
     Active Substance: ALUMINUM HYDROXIDE\CALCIUM CARBONATE\DIMETHICONE\MAGNESIUM HYDROXIDE
     Indication: Bone disorder
     Dosage: 1000 MG A DAY
     Route: 065
  3. LISINOPRIL [Concomitant]
     Active Substance: LISINOPRIL
     Indication: Cardiovascular disorder
     Dosage: 10 MG A DAY
     Route: 065
  4. SPIRONOLACTONE [Concomitant]
     Active Substance: SPIRONOLACTONE
     Indication: Cardiovascular disorder
     Dosage: 25 MG ONCE A DAY
     Route: 065
  5. VITAMIN C [Concomitant]
     Active Substance: ASCORBIC ACID
     Indication: Immune system disorder
     Dosage: 500 MG ONCE A DAY
     Route: 065
  6. VITAMIN D3 [Concomitant]
     Active Substance: CHOLECALCIFEROL
     Indication: Bone disorder
     Dosage: 2000 IU ONCE A DAY
     Route: 065

REACTIONS (1)
  - Pollakiuria [Not Recovered/Not Resolved]

NARRATIVE: CASE EVENT DATE: 20240101
